FAERS Safety Report 25773147 (Version 1)
Quarter: 2025Q3

REPORT INFORMATION
  Report Type: Spontaneous
  Country: US (occurrence: US)
  Receive Date: 20250908
  Receipt Date: 20250908
  Transmission Date: 20251020
  Serious: Yes (Hospitalization)
  Sender: SPRINGWORKS THERAPEUTIC
  Company Number: US-SPRINGWORKS THERAPEUTICS-SW-002871

PATIENT
  Age: 40 Year
  Sex: Female

DRUGS (2)
  1. OGSIVEO [Suspect]
     Active Substance: NIROGACESTAT HYDROBROMIDE
     Indication: Desmoid tumour
     Dosage: 150 MILLIGRAM, BID
  2. OGSIVEO [Suspect]
     Active Substance: NIROGACESTAT HYDROBROMIDE
     Dosage: 100 MILLIGRAM, BID

REACTIONS (2)
  - Diarrhoea [Unknown]
  - Blood potassium decreased [Unknown]
